FAERS Safety Report 20960263 (Version 4)
Quarter: 2022Q4

REPORT INFORMATION
  Report Type: Spontaneous
  Country: US (occurrence: US)
  Receive Date: 20220615
  Receipt Date: 20221206
  Transmission Date: 20230113
  Serious: Yes (Other)
  Sender: FDA-Public Use
  Company Number: US-BRISTOL-MYERS SQUIBB COMPANY-2022-053405

PATIENT
  Age: 61 Year
  Sex: Female
  Weight: 56.69 kg

DRUGS (4)
  1. REVLIMID [Suspect]
     Active Substance: LENALIDOMIDE
     Indication: Plasma cell myeloma
     Dosage: 5 MG 1 CAPSULE DAILY
     Route: 048
     Dates: start: 20190820
  2. REVLIMID [Suspect]
     Active Substance: LENALIDOMIDE
     Route: 048
     Dates: start: 20220304
  3. REVLIMID [Suspect]
     Active Substance: LENALIDOMIDE
     Dosage: D1-28
     Route: 048
     Dates: start: 20220304
  4. REVLIMID [Suspect]
     Active Substance: LENALIDOMIDE
     Dosage: 5 MG, EVERY OTHER DAY
     Route: 065

REACTIONS (5)
  - Neutropenia [Recovered/Resolved]
  - Constipation [Recovered/Resolved]
  - Laboratory test abnormal [Recovered/Resolved]
  - Anaemia [Recovered/Resolved]
  - Off label use [Unknown]

NARRATIVE: CASE EVENT DATE: 20220501
